FAERS Safety Report 4356981-8 (Version None)
Quarter: 2004Q2

REPORT INFORMATION
  Report Type: 
  Country: None (occurrence: None)
  Receive Date: 20040507
  Receipt Date: 20040415
  Transmission Date: 20050107
  Serious: Yes (Hospitalization, Other)
  Sender: FDA-Public Use
  Company Number: USA040465070

PATIENT
  Age: 8 Year
  Sex: Male
  Weight: 28 kg

DRUGS (3)
  1. STRATTERA [Suspect]
     Indication: ATTENTION DEFICIT/HYPERACTIVITY DISORDER
     Dosage: 36 MG DAY
     Dates: start: 20031001
  2. CONCERTA [Concomitant]
  3. ALBUTEROL [Concomitant]

REACTIONS (1)
  - GRAND MAL CONVULSION [None]
